FAERS Safety Report 25717593 (Version 5)
Quarter: 2025Q4

REPORT INFORMATION
  Report Type: Spontaneous
  Country: JP (occurrence: JP)
  Receive Date: 20250822
  Receipt Date: 20251030
  Transmission Date: 20260118
  Serious: Yes (Other)
  Sender: MERCK SHARP & DOHME LLC
  Company Number: JP-ONO-2025JP014847

PATIENT
  Age: 68 Year
  Sex: Male

DRUGS (1)
  1. SITAGLIPTIN [Suspect]
     Active Substance: SITAGLIPTIN
     Indication: Type 2 diabetes mellitus
     Dosage: 50 MG
     Route: 048
     Dates: start: 20170724

REACTIONS (4)
  - Paralysis [Unknown]
  - Hypoaesthesia [Unknown]
  - Hypoglycaemia [Unknown]
  - Diabetic neuropathy [Unknown]
